FAERS Safety Report 8456767-9 (Version None)
Quarter: 2012Q2

REPORT INFORMATION
  Report Type: 
  Country: None (occurrence: None)
  Receive Date: 20120621
  Receipt Date: 20120613
  Transmission Date: 20120825
  Serious: Yes (Death, Hospitalization)
  Sender: FDA-Public Use
  Company Number: IT-ACTELION-A-CH2012-65871

PATIENT
  Sex: Male

DRUGS (2)
  1. TRACLEER [Suspect]
     Dosage: 62.5 MG, BID
     Route: 048
     Dates: start: 20090401, end: 20090501
  2. TRACLEER [Suspect]
     Indication: DIGITAL ULCER
     Dosage: 125 MG, BID
     Route: 048
     Dates: start: 20090501, end: 20110301

REACTIONS (2)
  - CARDIAC FAILURE [None]
  - RASH ERYTHEMATOUS [None]
